FAERS Safety Report 5664038-9 (Version None)
Quarter: 2008Q1

REPORT INFORMATION
  Report Type: 
  Country: None (occurrence: None)
  Receive Date: 20080314
  Receipt Date: 20080313
  Transmission Date: 20080703
  Serious: Yes (Death)
  Sender: FDA-Public Use
  Company Number: IN-BRISTOL-MYERS SQUIBB COMPANY-14074272

PATIENT
  Age: 61 Year
  Sex: Male
  Weight: 37 kg

DRUGS (6)
  1. CISPLATIN [Suspect]
     Indication: NEOPLASM MALIGNANT
     Route: 042
     Dates: start: 20080110
  2. ALIMTA [Suspect]
     Indication: NEOPLASM MALIGNANT
     Route: 042
     Dates: start: 20080110
  3. DEXTROPROPOXYPHENE [Concomitant]
     Indication: PAIN
     Dates: start: 20071108, end: 20080114
  4. FOLIC ACID [Concomitant]
     Dates: start: 20071108
  5. VITAMIN B-12 [Concomitant]
     Dates: start: 20071108
  6. DEXAMETHASONE TAB [Concomitant]
     Dates: start: 20080109, end: 20080111

REACTIONS (1)
  - DIARRHOEA [None]
